FAERS Safety Report 17233399 (Version 1)
Quarter: 2020Q1

REPORT INFORMATION
  Report Type: Spontaneous
  Country: FR (occurrence: FR)
  Receive Date: 20200104
  Receipt Date: 20200104
  Transmission Date: 20200409
  Serious: Yes (Hospitalization)
  Sender: FDA-Public Use
  Company Number: FR-TEVA-2019-FR-1160846

PATIENT
  Age: 71 Year
  Sex: Female

DRUGS (7)
  1. DIAMICRON 60 MG, COMPRIM? S?CABLE ? LIB?RATION MODIFI?E [Suspect]
     Active Substance: GLICLAZIDE
     Indication: TYPE 2 DIABETES MELLITUS
     Dosage: 0-0.5-0, 60 MG
     Route: 048
  2. CRESTOR [Suspect]
     Active Substance: ROSUVASTATIN CALCIUM
     Indication: PROPHYLAXIS
     Dosage: 5 MG
     Route: 048
  3. NICORANDIL [Suspect]
     Active Substance: NICORANDIL
     Indication: MYOCARDIAL ISCHAEMIA
     Dosage: 20 MG
     Route: 048
  4. PLAVIX [Suspect]
     Active Substance: CLOPIDOGREL BISULFATE
     Indication: THROMBOSIS PROPHYLAXIS
     Dosage: 75 MG
     Route: 048
  5. SOTALOL (CHLORHYDRATE DE) [Suspect]
     Active Substance: SOTALOL
     Indication: MYOCARDIAL ISCHAEMIA
     Dosage: 160 MG
     Route: 048
  6. ISOCARD [ISOSORBIDE DINITRATE] [Suspect]
     Active Substance: ISOSORBIDE DINITRATE
     Indication: MYOCARDIAL ISCHAEMIA
     Route: 048
  7. FUROSEMIDE. [Suspect]
     Active Substance: FUROSEMIDE
     Indication: MYOCARDIAL ISCHAEMIA
     Dosage: 40 MG
     Route: 048

REACTIONS (1)
  - Organising pneumonia [Not Recovered/Not Resolved]

NARRATIVE: CASE EVENT DATE: 20191023
